FAERS Safety Report 5983956-5 (Version None)
Quarter: 2008Q4

REPORT INFORMATION
  Report Type: 
  Country: None (occurrence: None)
  Receive Date: 20081208
  Receipt Date: 20081124
  Transmission Date: 20090506
  Serious: Yes (Death, Hospitalization, Other)
  Sender: FDA-Public Use
  Company Number: PL-ROCHE-599015

PATIENT
  Age: 71 Year
  Sex: Female

DRUGS (2)
  1. CAPECITABINE [Suspect]
     Dosage: FORM: CAPSULE SOFT
     Route: 065
  2. VINORELBINE TARTRATE [Suspect]
     Dosage: FORM: CAPSULE SOFT
     Route: 048

REACTIONS (12)
  - ABDOMINAL PAIN [None]
  - ACIDOSIS [None]
  - BRONCHOPNEUMONIA [None]
  - DEHYDRATION [None]
  - HYPERGLYCAEMIA [None]
  - HYPOCALCAEMIA [None]
  - HYPONATRAEMIA [None]
  - METASTATIC NEOPLASM [None]
  - NAUSEA [None]
  - NEUTROPENIA [None]
  - PULMONARY OEDEMA [None]
  - VOMITING [None]
